FAERS Safety Report 8119295-6 (Version None)
Quarter: 2012Q1

REPORT INFORMATION
  Report Type: 
  Country: None (occurrence: None)
  Receive Date: 20120207
  Receipt Date: 20120126
  Transmission Date: 20120608
  Serious: Yes (Hospitalization, Other)
  Sender: FDA-Public Use
  Company Number: US-ELI_LILLY_AND_COMPANY-US201201009006

PATIENT
  Age: 65 Year
  Sex: Female

DRUGS (6)
  1. HALDOL [Concomitant]
  2. ZYPREXA [Suspect]
     Indication: PSYCHOTIC DISORDER
     Dosage: 5 MG, QD
     Dates: start: 20111103, end: 20120119
  3. ZYPREXA [Suspect]
     Dosage: 2.5 MG, QD
     Dates: start: 20120120
  4. ABILIFY [Concomitant]
  5. NAMENDA [Concomitant]
  6. RISPERIDONA [Concomitant]

REACTIONS (7)
  - EYE MOVEMENT DISORDER [None]
  - CLOSTRIDIUM DIFFICILE COLITIS [None]
  - PNEUMONIA [None]
  - HEART RATE INCREASED [None]
  - CYANOSIS [None]
  - PAIN [None]
  - OFF LABEL USE [None]
